FAERS Safety Report 21487082 (Version 1)
Quarter: 2022Q4

REPORT INFORMATION
  Report Type: Spontaneous
  Country: US (occurrence: None)
  Receive Date: 20221020
  Receipt Date: 20221020
  Transmission Date: 20230112
  Serious: No
  Sender: FDA-Public Use
  Company Number: None

PATIENT
  Sex: 0

DRUGS (1)
  1. LEVOTHYROXINE [Suspect]
     Active Substance: LEVOTHYROXINE

REACTIONS (7)
  - Menstrual disorder [None]
  - Pain [None]
  - Asthenia [None]
  - Oropharyngeal pain [None]
  - Swelling face [None]
  - Muscular weakness [None]
  - Hyperaesthesia [None]
